FAERS Safety Report 20059768 (Version 13)
Quarter: 2022Q1

REPORT INFORMATION
  Report Type: Report from Study
  Country: CA (occurrence: CA)
  Receive Date: 20211111
  Receipt Date: 20220225
  Transmission Date: 20220423
  Serious: Yes (Other)
  Sender: FDA-Public Use
  Company Number: CA-BIOGEN-2021BI01063131

PATIENT
  Age: 63 Year
  Sex: Female

DRUGS (5)
  1. DALFAMPRIDINE [Suspect]
     Active Substance: DALFAMPRIDINE
     Indication: Multiple sclerosis
     Route: 048
     Dates: start: 20211019
  2. DALFAMPRIDINE [Suspect]
     Active Substance: DALFAMPRIDINE
     Route: 048
     Dates: start: 20211019, end: 20211105
  3. DALFAMPRIDINE [Suspect]
     Active Substance: DALFAMPRIDINE
     Route: 048
     Dates: start: 20211019, end: 20211218
  4. BETASERON [Suspect]
     Active Substance: INTERFERON BETA-1B
     Indication: Product used for unknown indication
     Route: 065
  5. AMITRIPTYLINE [Concomitant]
     Active Substance: AMITRIPTYLINE
     Indication: Product used for unknown indication
     Route: 065

REACTIONS (36)
  - Paresis [Unknown]
  - Sinusitis [Unknown]
  - Hepatomegaly [Unknown]
  - Abdominal distension [Not Recovered/Not Resolved]
  - Biliary colic [Unknown]
  - Cholelithiasis [Unknown]
  - Muscular weakness [Unknown]
  - Mobility decreased [Unknown]
  - Therapeutic product effect decreased [Unknown]
  - Hyperchlorhydria [Unknown]
  - Obesity [Unknown]
  - Peripheral swelling [Unknown]
  - Cellulite [Unknown]
  - Chest pain [Unknown]
  - Intentional dose omission [Unknown]
  - Electric shock sensation [Unknown]
  - Spinal pain [Unknown]
  - Chest discomfort [Unknown]
  - Abdominal pain [Unknown]
  - Condition aggravated [Unknown]
  - Kidney enlargement [Unknown]
  - Gait inability [Not Recovered/Not Resolved]
  - Dysstasia [Not Recovered/Not Resolved]
  - Weight increased [Unknown]
  - Pain in extremity [Not Recovered/Not Resolved]
  - Pollakiuria [Unknown]
  - Dysuria [Recovered/Resolved]
  - Drug intolerance [Unknown]
  - Musculoskeletal disorder [Unknown]
  - Back pain [Unknown]
  - Dizziness [Unknown]
  - Balance disorder [Unknown]
  - Tremor [Unknown]
  - Multiple sclerosis relapse [Unknown]
  - Asthenia [Unknown]
  - Gait disturbance [Unknown]

NARRATIVE: CASE EVENT DATE: 20211026
